FAERS Safety Report 18794263 (Version 1)
Quarter: 2021Q1

REPORT INFORMATION
  Report Type: Spontaneous
  Country: US (occurrence: US)
  Receive Date: 20210127
  Receipt Date: 20210127
  Transmission Date: 20210419
  Serious: No
  Sender: FDA-Public Use
  Company Number: US-PERRIGO-20US008815

PATIENT
  Age: 50 Year
  Sex: Female
  Weight: 86.17 kg

DRUGS (2)
  1. IBUPROFEN. [Suspect]
     Active Substance: IBUPROFEN
     Indication: OFF LABEL USE
     Dosage: UNKNOWN, SINGLE
     Route: 048
     Dates: start: 20200529, end: 20200529
  2. IBUPROFEN. [Suspect]
     Active Substance: IBUPROFEN
     Indication: OFF LABEL USE
     Dosage: UNKNOWN, SINGLE
     Route: 048
     Dates: start: 20200529, end: 20200529

REACTIONS (3)
  - Off label use [Recovered/Resolved]
  - Pharyngeal swelling [Recovered/Resolved]
  - Oral discomfort [Recovered/Resolved]

NARRATIVE: CASE EVENT DATE: 20200529
